FAERS Safety Report 19489805 (Version 2)
Quarter: 2022Q4

REPORT INFORMATION
  Report Type: Spontaneous
  Country: PL (occurrence: PL)
  Receive Date: 20210704
  Receipt Date: 20221122
  Transmission Date: 20230113
  Serious: Yes (Other)
  Sender: FDA-Public Use
  Company Number: PL-NOVARTISPH-NVSC2021PL140186

PATIENT
  Age: 68 Year
  Sex: Male

DRUGS (1)
  1. ENTRESTO [Suspect]
     Active Substance: SACUBITRIL\VALSARTAN
     Indication: Product used for unknown indication
     Dosage: UNK
     Route: 065

REACTIONS (8)
  - Chronic coronary syndrome [Unknown]
  - Congestive cardiomyopathy [Unknown]
  - Blood glucose abnormal [Unknown]
  - Atrioventricular block first degree [Unknown]
  - Dyslipidaemia [Unknown]
  - Intervertebral disc degeneration [Unknown]
  - Vitamin D deficiency [Unknown]
  - Hypertension [Unknown]
